FAERS Safety Report 19252252 (Version 1)
Quarter: 2021Q2

REPORT INFORMATION
  Report Type: Spontaneous
  Country: US (occurrence: US)
  Receive Date: 20210513
  Receipt Date: 20210513
  Transmission Date: 20210717
  Serious: No
  Sender: FDA-Public Use
  Company Number: US-NOVITIUMPHARMA-2021USNVP00041

PATIENT

DRUGS (2)
  1. ENSTILLAR [Concomitant]
     Indication: PRODUCT USED FOR UNKNOWN INDICATION
  2. PREDNISONE TABLETS, USP 10 MG [Suspect]
     Active Substance: PREDNISONE
     Indication: PERIPHERAL SWELLING
     Route: 048
     Dates: start: 20210414, end: 20210420

REACTIONS (1)
  - Headache [Unknown]

NARRATIVE: CASE EVENT DATE: 20210414
